FAERS Safety Report 9776250 (Version 2)
Quarter: 2014Q1

REPORT INFORMATION
  Report Type: Spontaneous
  Country: IT (occurrence: IT)
  Receive Date: 20131220
  Receipt Date: 20140205
  Transmission Date: 20141002
  Serious: Yes (Hospitalization)
  Sender: FDA-Public Use
  Company Number: IT-MYLANLABS-113AS20130502

PATIENT
  Age: 59 Year
  Sex: Female
  Weight: 0 kg

DRUGS (2)
  1. CITALOPRAM [Suspect]
     Indication: MAJOR DEPRESSION
     Dosage: 1 DF DAILY
     Route: 048
     Dates: start: 20131024, end: 20131024
  2. MIRTAZAPINE [Suspect]
     Indication: MAJOR DEPRESSION
     Dosage: 1 DF DAILY
     Route: 048
     Dates: start: 20131024, end: 20131024

REACTIONS (4)
  - Coma [Recovered/Resolved]
  - Intentional self-injury [Unknown]
  - Drug abuse [Unknown]
  - Suicide attempt [Unknown]
